FAERS Safety Report 9449181 (Version 1)
Quarter: 2013Q3

REPORT INFORMATION
  Report Type: Spontaneous
  Country: US (occurrence: None)
  Receive Date: 20130806
  Receipt Date: 20130806
  Transmission Date: 20140515
  Serious: Yes (Hospitalization)
  Sender: FDA-Public Use
  Company Number: LIT-13-0023

PATIENT
  Age: 60 Year
  Sex: Male

DRUGS (1)
  1. LIDOCAINE [Suspect]
     Indication: ANAESTHESIA
     Route: 061

REACTIONS (3)
  - Toxicity to various agents [None]
  - Ataxia [None]
  - Diplopia [None]
